FAERS Safety Report 4805855-4 (Version None)
Quarter: 2005Q4

REPORT INFORMATION
  Report Type: 
  Country: None (occurrence: None)
  Receive Date: 20051018
  Receipt Date: 20051018
  Transmission Date: 20060501
  Serious: No
  Sender: FDA-Public Use
  Company Number: None

PATIENT

DRUGS (2)
  1. CARBOCAIN [Suspect]
     Route: 004
  2. SEPTOCAINE [Suspect]
     Dosage: DENTAL CARPULES
     Route: 004

REACTIONS (1)
  - MEDICATION ERROR [None]
